FAERS Safety Report 4944505-3 (Version None)
Quarter: 2006Q1

REPORT INFORMATION
  Report Type: 
  Country: None (occurrence: None)
  Receive Date: 20060315
  Receipt Date: 20060303
  Transmission Date: 20060701
  Serious: Yes (Other)
  Sender: FDA-Public Use
  Company Number: JP-SANOFI-SYNTHELABO-A01200601728

PATIENT
  Age: 82 Year
  Sex: Female

DRUGS (4)
  1. MYSLEE [Suspect]
     Indication: DRUG USE FOR UNKNOWN INDICATION
     Dosage: 5 MG
     Route: 048
  2. ZITHROMAC [Concomitant]
     Indication: DRUG USE FOR UNKNOWN INDICATION
     Dosage: 250 MG
     Route: 048
  3. MEDICON [Concomitant]
     Indication: DRUG USE FOR UNKNOWN INDICATION
     Dosage: 45 MG
     Route: 048
  4. PL [Concomitant]
     Indication: DRUG USE FOR UNKNOWN INDICATION
     Dosage: 9 G
     Route: 048

REACTIONS (1)
  - DELIRIUM [None]
